FAERS Safety Report 7982674-1 (Version None)
Quarter: 2011Q4

REPORT INFORMATION
  Report Type: 
  Country: None (occurrence: None)
  Receive Date: 20111215
  Receipt Date: 20111213
  Transmission Date: 20120403
  Serious: No
  Sender: FDA-Public Use
  Company Number: US-PFIZER INC-2011304262

PATIENT
  Sex: Female

DRUGS (1)
  1. CYTOMEL [Suspect]
     Dosage: UNK
     Dates: start: 20100901

REACTIONS (5)
  - FLATULENCE [None]
  - ABDOMINAL DISCOMFORT [None]
  - HEADACHE [None]
  - FATIGUE [None]
  - FEELING ABNORMAL [None]
